FAERS Safety Report 12073366 (Version 1)
Quarter: 2016Q1

REPORT INFORMATION
  Report Type: Spontaneous
  Country: US (occurrence: US)
  Receive Date: 20160212
  Receipt Date: 20160212
  Transmission Date: 20160526
  Serious: Yes (Other)
  Sender: FDA-Public Use
  Company Number: US-BEH-2016058515

PATIENT
  Sex: Male
  Weight: 103 kg

DRUGS (23)
  1. HIZENTRA [Suspect]
     Active Substance: HUMAN IMMUNOGLOBULIN G
  2. EPIPEN [Concomitant]
     Active Substance: EPINEPHRINE
  3. TRICOR [Concomitant]
     Active Substance: FENOFIBRATE
  4. IBUPROFEN. [Concomitant]
     Active Substance: IBUPROFEN
  5. HIZENTRA [Suspect]
     Active Substance: HUMAN IMMUNOGLOBULIN G
     Route: 058
     Dates: start: 20120529
  6. ZITHROMAX [Concomitant]
     Active Substance: AZITHROMYCIN DIHYDRATE
  7. VALIUM [Concomitant]
     Active Substance: DIAZEPAM
  8. PROVENTIL [Concomitant]
     Active Substance: ALBUTEROL
  9. ANTI DIARRHEAL [Concomitant]
     Active Substance: LOPERAMIDE HYDROCHLORIDE
  10. FLEXERIL [Concomitant]
     Active Substance: CYCLOBENZAPRINE HYDROCHLORIDE
  11. LYRICA [Concomitant]
     Active Substance: PREGABALIN
  12. NEXIUM [Concomitant]
     Active Substance: ESOMEPRAZOLE MAGNESIUM
  13. MAXALT [Concomitant]
     Active Substance: RIZATRIPTAN BENZOATE
  14. ACETAMINOPHEN. [Concomitant]
     Active Substance: ACETAMINOPHEN
  15. LIDOCAIN/PRILOCAINE [Concomitant]
  16. TRAZODONE [Concomitant]
     Active Substance: TRAZODONE HYDROCHLORIDE
  17. EVOXAC [Concomitant]
     Active Substance: CEVIMELINE HYDROCHLORIDE
  18. HIZENTRA [Suspect]
     Active Substance: HUMAN IMMUNOGLOBULIN G
     Indication: HYPOGAMMAGLOBULINAEMIA
  19. PROVENTIL [Concomitant]
     Active Substance: ALBUTEROL
  20. FOLIC ACID. [Concomitant]
     Active Substance: FOLIC ACID
  21. DIPHENHYDRAMINE. [Concomitant]
     Active Substance: DIPHENHYDRAMINE
  22. CALTRATE [Concomitant]
     Active Substance: CALCIUM CARBONATE
  23. RESTASIS [Concomitant]
     Active Substance: CYCLOSPORINE

REACTIONS (1)
  - Lower respiratory tract infection [Unknown]
